FAERS Safety Report 6069265-7 (Version None)
Quarter: 2009Q1

REPORT INFORMATION
  Report Type: 
  Country: None (occurrence: None)
  Receive Date: 20090206
  Receipt Date: 20090123
  Transmission Date: 20090719
  Serious: Yes (Hospitalization)
  Sender: FDA-Public Use
  Company Number: FR-ROCHE-595977

PATIENT
  Sex: Female

DRUGS (6)
  1. PEG-INTERFERON ALFA 2A (RO 25-8310) [Suspect]
     Indication: HEPATITIS C
     Dosage: DAILY DOSE: 25.7143 MCG
     Route: 058
     Dates: start: 20081009
  2. RIBAVIRIN [Suspect]
     Indication: HEPATITIS C
     Dosage: DOSE: 600 MG IN AM AND 400 MG EVERY PM
     Route: 048
     Dates: start: 20081009
  3. BLINDED VX-950 [Suspect]
     Indication: HEPATITIS C
     Dosage: DOSE BLINDED, FREQUENCY: DAILY
     Route: 048
     Dates: start: 20081009
  4. DAFALGAN [Concomitant]
     Route: 048
     Dates: start: 20081009
  5. LYRICA [Concomitant]
  6. RIVOTRIL [Concomitant]
     Dates: start: 20081029

REACTIONS (1)
  - CRYOGLOBULINAEMIA [None]
